FAERS Safety Report 9808793 (Version 1)
Quarter: 2014Q1

REPORT INFORMATION
  Report Type: Spontaneous
  Country: US (occurrence: US)
  Receive Date: 20140110
  Receipt Date: 20140110
  Transmission Date: 20141002
  Serious: Yes (Death)
  Sender: FDA-Public Use
  Company Number: US-FRI-1000052773

PATIENT
  Sex: Female

DRUGS (14)
  1. NAMENDA [Suspect]
     Indication: DEMENTIA ALZHEIMER^S TYPE
     Dates: start: 20080107
  2. EXELON [Concomitant]
     Indication: DEMENTIA ALZHEIMER^S TYPE
  3. REMERON [Concomitant]
  4. VITAMIN D [Concomitant]
  5. RITALIN [Concomitant]
  6. CALCIUM [Concomitant]
  7. MEGACE [Concomitant]
  8. VITAMIN B 12 [Concomitant]
  9. DIGOXIN [Concomitant]
  10. PRILOSEC [Concomitant]
  11. AMITIZA [Concomitant]
  12. ASPIRIN [Concomitant]
  13. FOLIC ACID [Concomitant]
  14. POTASSIUM [Concomitant]

REACTIONS (1)
  - Dementia Alzheimer^s type [Fatal]
